FAERS Safety Report 8774759 (Version 1)
Quarter: 2012Q4

REPORT INFORMATION
  Report Type: 
  Country: US (occurrence: US)
  Receive Date: 20120910
  Receipt Date: 20120910
  Transmission Date: 20130627
  Serious: No
  Sender: FDA-Public Use
  Company Number: US-PFIZER INC-2012221512

PATIENT
  Age: 55 Year
  Sex: Female
  Weight: 67.12 kg

DRUGS (11)
  1. CHANTIX [Suspect]
     Indication: SMOKING CESSATION THERAPY
     Dosage: 0.5 mg, daily
     Route: 048
     Dates: start: 20120827, end: 20120829
  2. CHANTIX [Suspect]
     Dosage: 0.5 mg, 2x/day
     Route: 048
     Dates: start: 20120830, end: 20120831
  3. HUMIRA [Concomitant]
     Indication: RHEUMATOID ARTHRITIS
     Dosage: 40 mg,every other week
  4. OPANA [Concomitant]
     Indication: BACK PAIN
     Dosage: 40 mg, 2x/day
  5. SAVELLA [Concomitant]
     Indication: FIBROMYALGIA
     Dosage: 50 mg, daily
  6. LISINOPRIL [Concomitant]
     Indication: HYPERTENSION
     Dosage: 20 mg, daily
  7. AMLODIPINE BESYLATE [Concomitant]
     Indication: HYPERTENSION
     Dosage: 10 mg, daily
  8. PREMARIN [Concomitant]
     Indication: HORMONE THERAPY
     Dosage: 0.9 mg, daily
  9. ROPINIROLE HYDROCHLORIDE [Concomitant]
     Dosage: 5mg daily at bed time
  10. MECLIZINE [Concomitant]
     Indication: DIZZINESS
     Dosage: 25 mg, 2x/day
  11. ALPRAZOLAM [Concomitant]
     Dosage: 0.5 mg, 2x/day

REACTIONS (2)
  - Expired drug administered [Unknown]
  - Vomiting [Recovered/Resolved]
